FAERS Safety Report 5068195-7 (Version None)
Quarter: 2006Q3

REPORT INFORMATION
  Report Type: 
  Country: None (occurrence: None)
  Receive Date: 20060802
  Receipt Date: 20050311
  Transmission Date: 20061208
  Serious: Yes (Other)
  Sender: FDA-Public Use
  Company Number: US-BRISTOL-MYERS SQUIBB COMPANY-12929410

PATIENT
  Age: 76 Year
  Sex: Female
  Weight: 68 kg

DRUGS (14)
  1. COUMADIN [Suspect]
     Indication: ATRIAL FIBRILLATION
     Dosage: BEGAN WITH VARYING DOSE, CURRENT DOSE 3 MG, 1 TAB 6 X WEEKLY AND 4 MG 1 TAB WEEKLY
     Route: 048
     Dates: start: 20010601
  2. ACCUPRIL [Concomitant]
     Dates: start: 20010901
  3. AMIODARONE HCL [Concomitant]
  4. BIOTIN [Concomitant]
  5. CALCIUM GLUCONATE [Concomitant]
  6. CORTISONE [Concomitant]
  7. DERMATOP [Concomitant]
     Route: 061
  8. FINACEA [Concomitant]
  9. METROGEL [Concomitant]
  10. RED YEAST RICE [Concomitant]
  11. SUPARTZ [Concomitant]
     Dosage: ADMINISTERED ON 11-, 18-, 21-, AND 25-FEB-2005; 04-, AND 11-MAR-2005
     Dates: start: 20050211, end: 20050311
  12. TEARS NATURALE [Concomitant]
  13. TETRACYCLINE [Concomitant]
  14. MULTIVITAMIN [Concomitant]
     Dosage: TAKEN FOR ^YEARS^.

REACTIONS (2)
  - ARTHRITIS [None]
  - INTERNATIONAL NORMALISED RATIO FLUCTUATION [None]
